FAERS Safety Report 7961733-3 (Version None)
Quarter: 2011Q4

REPORT INFORMATION
  Report Type: 
  Country: None (occurrence: None)
  Receive Date: 20111207
  Receipt Date: 20111129
  Transmission Date: 20120403
  Serious: Yes (Other)
  Sender: FDA-Public Use
  Company Number: US-PFIZER INC-2011294857

PATIENT
  Age: 12 Month
  Sex: Male

DRUGS (1)
  1. ONDANSETRON [Suspect]
     Dosage: UNK
     Route: 048

REACTIONS (5)
  - HEPATOTOXICITY [None]
  - SEROTONIN SYNDROME [None]
  - CONVULSION [None]
  - ACCIDENTAL EXPOSURE [None]
  - OVERDOSE [None]
